FAERS Safety Report 23740864 (Version 1)
Quarter: 2024Q2

REPORT INFORMATION
  Report Type: Other
  Country: US (occurrence: None)
  Receive Date: 20240415
  Receipt Date: 20240415
  Transmission Date: 20240717
  Serious: Yes (Hospitalization)
  Sender: FDA-Public Use
  Company Number: US-ROCHE-3540696

PATIENT
  Age: 81 Year
  Sex: Male

DRUGS (7)
  1. ATEZOLIZUMAB [Suspect]
     Active Substance: ATEZOLIZUMAB
     Indication: Idiopathic pulmonary fibrosis
     Dosage: CYCLE=21 DAYS (MAX=9 CYCLES), ON 11/MAR/2024, HE RECEIVED LAST DOSE OF (ATEZOLIZUMAB(MPDL3280A))
     Route: 041
     Dates: start: 20240219
  2. GEMCITABINE HYDROCHLORIDE [Suspect]
     Active Substance: GEMCITABINE HYDROCHLORIDE
     Indication: Bladder cancer
     Dosage: LAST DOSE ON 21/MAR/2024
     Route: 042
     Dates: start: 20240219
  3. CISPLATIN [Suspect]
     Active Substance: CISPLATIN
     Indication: Idiopathic pulmonary fibrosis
     Route: 042
     Dates: start: 20240219
  4. MITOMYCIN C [Suspect]
     Active Substance: MITOMYCIN
     Indication: Idiopathic pulmonary fibrosis
     Route: 042
     Dates: start: 20240219
  5. FLUOROURACIL [Suspect]
     Active Substance: FLUOROURACIL
     Indication: Idiopathic pulmonary fibrosis
     Dosage: DOSES 1-5 AND 16-20 OF RT
     Route: 042
     Dates: start: 20240219
  6. TYLENOL [Concomitant]
     Active Substance: ACETAMINOPHEN
  7. OXYCODONE [Concomitant]
     Active Substance: OXYCODONE\OXYCODONE HYDROCHLORIDE

REACTIONS (1)
  - Acute kidney injury [Unknown]

NARRATIVE: CASE EVENT DATE: 20240325
